FAERS Safety Report 19699635 (Version 1)
Quarter: 2021Q3

REPORT INFORMATION
  Report Type: Spontaneous
  Country: CN (occurrence: CN)
  Receive Date: 20210813
  Receipt Date: 20210813
  Transmission Date: 20211014
  Serious: Yes (Other)
  Sender: FDA-Public Use
  Company Number: CN-PFIZER INC-202100999847

PATIENT
  Age: 77 Year
  Sex: Female
  Weight: 52.5 kg

DRUGS (2)
  1. ATORVASTATIN CALCIUM. [Suspect]
     Active Substance: ATORVASTATIN CALCIUM
     Indication: THERAPEUTIC PROCEDURE
     Dosage: 20 MG, 1X/DAY
     Route: 048
     Dates: start: 20210720, end: 20210722
  2. OMALIZUMAB. [Suspect]
     Active Substance: OMALIZUMAB
     Indication: ASTHMA
     Dosage: 150 MG, 1X/DAY
     Route: 041
     Dates: start: 20210720, end: 20210720

REACTIONS (4)
  - Chest discomfort [Recovering/Resolving]
  - Dizziness [Recovering/Resolving]
  - Tachypnoea [Recovering/Resolving]
  - Transaminases increased [Recovering/Resolving]

NARRATIVE: CASE EVENT DATE: 20210720
